FAERS Safety Report 6858909-5 (Version None)
Quarter: 2010Q3

REPORT INFORMATION
  Report Type: 
  Country: None (occurrence: None)
  Receive Date: 20100719
  Receipt Date: 20080216
  Transmission Date: 20110219
  Serious: No
  Sender: FDA-Public Use
  Company Number: US-PFIZER INC-2008016993

PATIENT
  Sex: Female
  Weight: 107.3 kg

DRUGS (3)
  1. CHANTIX [Suspect]
     Indication: SMOKING CESSATION THERAPY
     Dates: start: 20080201
  2. ADVICOR [Concomitant]
  3. EFFEXOR XR [Concomitant]

REACTIONS (3)
  - ABNORMAL DREAMS [None]
  - ERYTHEMA [None]
  - PARAESTHESIA [None]
